FAERS Safety Report 13655081 (Version 2)
Quarter: 2017Q3

REPORT INFORMATION
  Report Type: Spontaneous
  Country: US (occurrence: US)
  Receive Date: 20170615
  Receipt Date: 20170728
  Transmission Date: 20171127
  Serious: Yes (Other)
  Sender: FDA-Public Use
  Company Number: US-009507513-1706USA005845

PATIENT
  Age: 25 Year

DRUGS (1)
  1. NEXPLANON [Suspect]
     Active Substance: ETONOGESTREL
     Indication: CONTRACEPTION
     Dosage: 1 IMPLANT, UNK
     Route: 059

REACTIONS (8)
  - Device difficult to use [Recovered/Resolved]
  - Device deployment issue [Recovered/Resolved]
  - Implant site scar [Unknown]
  - Complication of device removal [Recovered/Resolved]
  - General anaesthesia [Unknown]
  - Feeling abnormal [Unknown]
  - Neuralgia [Recovered/Resolved]
  - Product use issue [Unknown]
